FAERS Safety Report 7775052-1 (Version None)
Quarter: 2011Q3

REPORT INFORMATION
  Report Type: 
  Country: None (occurrence: None)
  Receive Date: 20110923
  Receipt Date: 20110912
  Transmission Date: 20111222
  Serious: Yes (Hospitalization)
  Sender: FDA-Public Use
  Company Number: JP-JNJFOC-20071007078

PATIENT
  Sex: Male
  Weight: 70 kg

DRUGS (7)
  1. ALLOPURINOL [Suspect]
     Indication: HYPERURICAEMIA
     Route: 048
  2. RHEUMATREX [Suspect]
     Indication: RHEUMATOID ARTHRITIS
     Route: 048
     Dates: start: 20070130, end: 20071004
  3. REMICADE [Suspect]
     Indication: RHEUMATOID ARTHRITIS
     Route: 042
     Dates: start: 20070821
  4. PREDNISOLONE [Suspect]
     Indication: RHEUMATOID ARTHRITIS
     Route: 048
  5. FOLIC ACID [Suspect]
     Indication: HEPATIC FUNCTION ABNORMAL
     Route: 048
  6. REMICADE [Suspect]
     Route: 042
     Dates: start: 20070710
  7. REMICADE [Suspect]
     Route: 042

REACTIONS (1)
  - PNEUMOCYSTIS JIROVECI PNEUMONIA [None]
